FAERS Safety Report 4383715-3 (Version None)
Quarter: 2004Q2

REPORT INFORMATION
  Report Type: 
  Country: None (occurrence: None)
  Receive Date: 20040608
  Receipt Date: 20031121
  Transmission Date: 20050107
  Serious: Yes (Other)
  Sender: FDA-Public Use
  Company Number: 200314375BCC

PATIENT
  Age: 58 Year
  Sex: Male
  Weight: 84.369 kg

DRUGS (2)
  1. ALEVE [Suspect]
     Dosage: 220 MG, QD, ORAL
     Route: 048
     Dates: start: 20031121
  2. NEXIUM [Concomitant]

REACTIONS (9)
  - ERYTHEMA [None]
  - EXTRASYSTOLES [None]
  - HEART RATE INCREASED [None]
  - HYPERSENSITIVITY [None]
  - HYPOAESTHESIA ORAL [None]
  - OEDEMA PERIPHERAL [None]
  - SWELLING FACE [None]
  - TONGUE DISCOLOURATION [None]
  - URTICARIA [None]
